FAERS Safety Report 4570422-7 (Version None)
Quarter: 2005Q1

REPORT INFORMATION
  Report Type: 
  Country: None (occurrence: None)
  Receive Date: 20050203
  Receipt Date: 20050203
  Transmission Date: 20050727
  Serious: Yes (Hospitalization)
  Sender: FDA-Public Use
  Company Number: None

PATIENT
  Age: 78 Year
  Sex: Male
  Weight: 91.4 kg

DRUGS (1)
  1. IBUPROFEN [Suspect]
     Dosage: 400 MG TID PRN PO
     Route: 048

REACTIONS (1)
  - GASTROINTESTINAL DISORDER [None]
